FAERS Safety Report 6073020-1 (Version None)
Quarter: 2009Q1

REPORT INFORMATION
  Report Type: 
  Country: None (occurrence: None)
  Receive Date: 20090209
  Receipt Date: 20090209
  Transmission Date: 20090719
  Serious: Yes (Disabling)
  Sender: FDA-Public Use
  Company Number: None

PATIENT
  Age: 29 Year
  Sex: Female
  Weight: 127.0072 kg

DRUGS (2)
  1. CYMBALTA [Suspect]
     Indication: POSTPARTUM DEPRESSION
     Dosage: 1 PER DAY EVERYDAY PO
     Route: 048
     Dates: start: 20070213, end: 20081110
  2. CYMBALTA [Suspect]
     Indication: POSTPARTUM DEPRESSION
     Dosage: 1 PER DAY EVERYDAY PO
     Route: 048
     Dates: start: 20081110, end: 20090129

REACTIONS (9)
  - CRYING [None]
  - DIARRHOEA [None]
  - LOSS OF LIBIDO [None]
  - MENTAL DISORDER [None]
  - MOOD SWINGS [None]
  - NAUSEA [None]
  - PANIC ATTACK [None]
  - PARAESTHESIA [None]
  - WITHDRAWAL SYNDROME [None]
